FAERS Safety Report 17888291 (Version 1)
Quarter: 2020Q2

REPORT INFORMATION
  Report Type: Spontaneous
  Country: ES (occurrence: ES)
  Receive Date: 20200612
  Receipt Date: 20200612
  Transmission Date: 20200714
  Serious: Yes (Hospitalization)
  Sender: FDA-Public Use
  Company Number: ES-ACCORD-185039

PATIENT
  Age: 64 Year
  Sex: Male

DRUGS (3)
  1. VESANOID [Concomitant]
     Active Substance: TRETINOIN
     Indication: ACUTE PROMYELOCYTIC LEUKAEMIA
     Dosage: 5 BREAKFAST, 5 DINNER FOR 15 DAYS PER CYCLE, STRENGTH: 10 MG
     Route: 048
     Dates: start: 20200211, end: 20200317
  2. METHOTREXATE. [Suspect]
     Active Substance: METHOTREXATE
     Indication: ACUTE PROMYELOCYTIC LEUKAEMIA
     Dosage: MAINTENANCE 7 MEAL TAKE ONCE A WEEK (TOTAL WEEKLY DOSE 35 MG) EXCEPT?THE DAYS YOU TAKE VESANOID
     Route: 048
     Dates: start: 20200211, end: 20200317
  3. MERCAPTOPURINE/MERCAPTOPURINE ANHYDROUS [Suspect]
     Active Substance: MERCAPTOPURINE
     Indication: ACUTE PROMYELOCYTIC LEUKAEMIA
     Dosage: 1 AT BREAKFAST TAKE DAILY EXCEPT DAYS YOU TAKE VESANOID
     Route: 048
     Dates: start: 20200211, end: 20200317

REACTIONS (2)
  - Febrile neutropenia [Recovered/Resolved]
  - Bone marrow failure [Recovered/Resolved]

NARRATIVE: CASE EVENT DATE: 20200316
